FAERS Safety Report 7319150-5 (Version None)
Quarter: 2011Q1

REPORT INFORMATION
  Report Type: 
  Country: None (occurrence: None)
  Receive Date: 20110228
  Receipt Date: 20110217
  Transmission Date: 20110831
  Serious: Yes (Hospitalization)
  Sender: FDA-Public Use
  Company Number: PHHY2011US13684

PATIENT
  Sex: Female
  Weight: 97.959 kg

DRUGS (8)
  1. GILENYA [Suspect]
     Indication: MULTIPLE SCLEROSIS
     Dosage: 0.5 MG, QD
     Route: 048
     Dates: start: 20110117, end: 20110207
  2. GABAPENTIN [Concomitant]
     Dosage: 800 MG, TID
  3. FLOMAX ^CSL^ [Concomitant]
     Dosage: 0.4 MG, UNK
  4. PERCOCET [Concomitant]
     Dosage: 10/325 PM
  5. HYOSCYAMINE [Concomitant]
     Dosage: 0.375 MG WITH 120
  6. HYOSCYAMINE [Concomitant]
     Dosage: 0.125 MG, UNK
  7. MORPHINE SULFATE [Concomitant]
     Dosage: 1.5 MG, WITH 120
  8. VESICARE [Concomitant]

REACTIONS (8)
  - HYPOAESTHESIA FACIAL [None]
  - HYPOAESTHESIA [None]
  - NAUSEA [None]
  - APHASIA [None]
  - WHITE BLOOD CELL COUNT INCREASED [None]
  - PROTEIN TOTAL INCREASED [None]
  - FATIGUE [None]
  - HEADACHE [None]
